FAERS Safety Report 12253929 (Version 1)
Quarter: 2016Q2

REPORT INFORMATION
  Report Type: Spontaneous
  Country: US (occurrence: US)
  Receive Date: 20160411
  Receipt Date: 20160411
  Transmission Date: 20160815
  Serious: No
  Sender: FDA-Public Use
  Company Number: US-PFIZER INC-2016194775

PATIENT
  Age: 56 Year
  Sex: Female
  Weight: 79.37 kg

DRUGS (3)
  1. VITAMIN D 1000 [Concomitant]
     Dosage: 1000 IU, UNK (X 1 WEEK)
  2. VITAMIN D [Suspect]
     Active Substance: CHOLECALCIFEROL
     Dosage: 2000 IU, DAILY (X 1.5 WEEKS)
  3. XELJANZ [Suspect]
     Active Substance: TOFACITINIB CITRATE
     Indication: RHEUMATOID ARTHRITIS
     Dosage: 5 MG, 2X/DAY
     Route: 048
     Dates: start: 201602

REACTIONS (2)
  - Headache [Recovering/Resolving]
  - Neck pain [Recovered/Resolved]

NARRATIVE: CASE EVENT DATE: 201603
